FAERS Safety Report 9137670 (Version 6)
Quarter: 2013Q4

REPORT INFORMATION
  Report Type: Spontaneous
  Country: US (occurrence: US)
  Receive Date: 20130304
  Receipt Date: 20131101
  Transmission Date: 20140711
  Serious: Yes (Hospitalization, Other)
  Sender: FDA-Public Use
  Company Number: US-009507513-1303USA001009

PATIENT
  Sex: Female

DRUGS (8)
  1. FOSAMAX [Suspect]
     Indication: OSTEOPOROSIS
     Dosage: 70 MG, QW
     Route: 048
     Dates: start: 200105, end: 200405
  2. ACTONEL [Suspect]
     Indication: OSTEOPOROSIS
     Dosage: 35 MG, QW
     Route: 048
     Dates: start: 2004, end: 200606
  3. BONIVA [Suspect]
     Indication: OSTEOPOROSIS
     Dosage: 150 MG, QM
     Route: 048
     Dates: start: 200607, end: 201201
  4. PATANASE [Concomitant]
     Indication: HYPERSENSITIVITY
  5. FLUTICASONE [Concomitant]
     Indication: HYPERSENSITIVITY
  6. ASTEPRO [Concomitant]
     Indication: HYPERSENSITIVITY
  7. ALREX [Concomitant]
     Indication: HYPERSENSITIVITY
  8. MIACALCIN [Concomitant]
     Indication: OSTEOPOROSIS POSTMENOPAUSAL

REACTIONS (12)
  - Femur fracture [Recovering/Resolving]
  - Intramedullary rod insertion [Unknown]
  - Low turnover osteopathy [Unknown]
  - Bone disorder [Unknown]
  - Tendonitis [Unknown]
  - Fall [Unknown]
  - Medical device complication [Unknown]
  - Medical device removal [Unknown]
  - Excoriation [Unknown]
  - Arthralgia [Unknown]
  - Arthralgia [Unknown]
  - Back pain [Unknown]
